FAERS Safety Report 6611390-3 (Version None)
Quarter: 2010Q1

REPORT INFORMATION
  Report Type: 
  Country: None (occurrence: None)
  Receive Date: 20100303
  Receipt Date: 20100225
  Transmission Date: 20100710
  Serious: Yes (Hospitalization)
  Sender: FDA-Public Use
  Company Number: FR-RB-014950-09

PATIENT
  Sex: Male

DRUGS (1)
  1. SUBUTEX [Suspect]
     Dosage: DOSING INFORMATION UNKNOWN
     Route: 042
     Dates: start: 20060301

REACTIONS (2)
  - DELUSION [None]
  - INTENTIONAL DRUG MISUSE [None]
